FAERS Safety Report 10171982 (Version 1)
Quarter: 2014Q2

REPORT INFORMATION
  Report Type: Spontaneous
  Country: US (occurrence: US)
  Receive Date: 20140515
  Receipt Date: 20140515
  Transmission Date: 20141212
  Serious: No
  Sender: FDA-Public Use
  Company Number: US-PFIZER INC-2014129514

PATIENT
  Age: 41 Year
  Sex: Female
  Weight: 71.66 kg

DRUGS (4)
  1. LYRICA [Suspect]
     Indication: FIBROMYALGIA
     Dosage: 150 MG, 3X/DAY
     Route: 048
     Dates: start: 200705
  2. LYRICA [Suspect]
     Indication: NERVE INJURY
  3. OXYCODONE [Suspect]
     Dosage: UNK
  4. FENTANYL [Suspect]
     Dosage: UNK
     Dates: end: 2009

REACTIONS (2)
  - Gait disturbance [Unknown]
  - Malaise [Unknown]
